FAERS Safety Report 12497236 (Version 6)
Quarter: 2016Q3

REPORT INFORMATION
  Report Type: Spontaneous
  Country: JP (occurrence: JP)
  Receive Date: 20160624
  Receipt Date: 20160824
  Transmission Date: 20161109
  Serious: Yes (Death, Hospitalization, Other)
  Sender: FDA-Public Use
  Company Number: JP-ASTRAZENECA-2016SE67695

PATIENT
  Age: 28204 Day
  Sex: Male
  Weight: 54 kg

DRUGS (2)
  1. CASODEX [Concomitant]
     Active Substance: BICALUTAMIDE
     Indication: PROSTATE CANCER
     Route: 048
     Dates: start: 20160406, end: 20160524
  2. ZOLADEX LA [Suspect]
     Active Substance: GOSERELIN ACETATE
     Indication: PROSTATE CANCER
     Route: 058
     Dates: start: 20160518, end: 20160518

REACTIONS (5)
  - Cerebral infarction [Fatal]
  - Subarachnoid haemorrhage [Not Recovered/Not Resolved]
  - Cerebral salt-wasting syndrome [Not Recovered/Not Resolved]
  - Blood bilirubin increased [Unknown]
  - Vasculitis cerebral [Fatal]

NARRATIVE: CASE EVENT DATE: 20160520
